FAERS Safety Report 21012233 (Version 2)
Quarter: 2022Q3

REPORT INFORMATION
  Report Type: Report from Study
  Country: PK (occurrence: PK)
  Receive Date: 20220627
  Receipt Date: 20220629
  Transmission Date: 20221027
  Serious: Yes (Death)
  Sender: FDA-Public Use
  Company Number: PK-NOVARTISPH-NVSC2022PK146368

PATIENT
  Age: 46 Year
  Sex: Male
  Weight: 65 kg

DRUGS (1)
  1. TASIGNA [Suspect]
     Active Substance: NILOTINIB
     Indication: Philadelphia positive chronic myeloid leukaemia
     Dosage: 800 MG (2+2 XBD)
     Route: 048
     Dates: start: 20120711

REACTIONS (1)
  - Death [Fatal]

NARRATIVE: CASE EVENT DATE: 20200420
